FAERS Safety Report 23233591 (Version 1)
Quarter: 2023Q4

REPORT INFORMATION
  Report Type: Spontaneous
  Country: GB (occurrence: GB)
  Receive Date: 20231128
  Receipt Date: 20231128
  Transmission Date: 20240109
  Serious: Yes (Other)
  Sender: FDA-Public Use
  Company Number: GB-Merck Healthcare KGaA-2023486820

PATIENT
  Age: 48 Year
  Sex: Male

DRUGS (2)
  1. METFORMIN [Suspect]
     Active Substance: METFORMIN HYDROCHLORIDE
     Indication: Diabetes mellitus
     Dosage: 2000 MG DAILY
  2. GLICLAZIDE [Suspect]
     Active Substance: GLICLAZIDE
     Indication: Diabetes mellitus
     Dosage: 80 MG TWICE A DAY

REACTIONS (2)
  - Acute painful neuropathy of rapid glycaemic control [Unknown]
  - Sleep disorder [Unknown]
